FAERS Safety Report 5492238-X (Version None)
Quarter: 2007Q4

REPORT INFORMATION
  Report Type: 
  Country: None (occurrence: None)
  Receive Date: 20071022
  Receipt Date: 20071011
  Transmission Date: 20080405
  Serious: Yes (Other)
  Sender: FDA-Public Use
  Company Number: US-ROCHE-524688

PATIENT
  Age: 16 Year
  Sex: Female
  Weight: 73 kg

DRUGS (1)
  1. ISOTRETINOIN [Suspect]
     Indication: ACNE
     Route: 048
     Dates: start: 20070426, end: 20071015

REACTIONS (1)
  - STAPHYLOCOCCAL INFECTION [None]
